FAERS Safety Report 10293290 (Version 1)
Quarter: 2014Q3

REPORT INFORMATION
  Report Type: Spontaneous
  Country: US (occurrence: US)
  Receive Date: 20140710
  Receipt Date: 20140710
  Transmission Date: 20150326
  Serious: Yes (Hospitalization, Other)
  Sender: FDA-Public Use
  Company Number: US-GLAXOSMITHKLINE-A0934276A

PATIENT
  Age: 51 Year
  Sex: Male
  Weight: 115.9 kg

DRUGS (1)
  1. AVANDIA [Suspect]
     Active Substance: ROSIGLITAZONE MALEATE
     Indication: DIABETES MELLITUS
     Route: 048

REACTIONS (6)
  - Renal failure [Unknown]
  - Cerebral haemorrhage [Unknown]
  - Injury [Unknown]
  - Cardiac failure congestive [Unknown]
  - Hypertensive emergency [Unknown]
  - Cerebrovascular accident [Unknown]
